FAERS Safety Report 4958920-5 (Version None)
Quarter: 2006Q1

REPORT INFORMATION
  Report Type: 
  Country: None (occurrence: None)
  Receive Date: 20060324
  Receipt Date: 20060307
  Transmission Date: 20060701
  Serious: Yes (Other)
  Sender: FDA-Public Use
  Company Number: HQWYE218508MAR06

PATIENT

DRUGS (1)
  1. DIAMOX [Suspect]
     Dosage: INTRAVENOUS
     Route: 042

REACTIONS (4)
  - CARDIOVASCULAR DISORDER [None]
  - CONDITION AGGRAVATED [None]
  - HEMIPARESIS [None]
  - INFUSION RELATED REACTION [None]
